FAERS Safety Report 14306495 (Version 1)
Quarter: 2017Q4

REPORT INFORMATION
  Report Type: Spontaneous
  Country: FR (occurrence: FR)
  Receive Date: 20171220
  Receipt Date: 20171220
  Transmission Date: 20180321
  Serious: Yes (Other)
  Sender: FDA-Public Use
  Company Number: FR-MERCK KGAA-2037441

PATIENT
  Age: 40 Year
  Sex: Female

DRUGS (1)
  1. NOVOTHYROX [Suspect]
     Active Substance: LEVOTHYROXINE SODIUM
     Indication: PRODUCT USED FOR UNKNOWN INDICATION

REACTIONS (17)
  - Paraesthesia [None]
  - Balance disorder [None]
  - Anxiety [None]
  - Loss of personal independence in daily activities [None]
  - Nausea [None]
  - Facial paralysis [None]
  - Arthralgia [None]
  - Fatigue [None]
  - Crying [None]
  - Impatience [None]
  - Impaired driving ability [None]
  - Vertigo [None]
  - Social avoidant behaviour [None]
  - Head discomfort [None]
  - Feeling cold [None]
  - Ear discomfort [None]
  - Eye movement disorder [None]

NARRATIVE: CASE EVENT DATE: 2017
